FAERS Safety Report 10098018 (Version 2)
Quarter: 2014Q2

REPORT INFORMATION
  Report Type: Spontaneous
  Country: US (occurrence: None)
  Receive Date: 20140421
  Receipt Date: 20140425
  Transmission Date: 20141212
  Serious: Yes (Death)
  Sender: FDA-Public Use
  Company Number: 2014AP002649

PATIENT
  Age: 81 Year
  Sex: Male
  Weight: 72 kg

DRUGS (7)
  1. FERRIPROX [Suspect]
     Indication: HAEMOCHROMATOSIS
     Route: 048
     Dates: start: 20140311, end: 20140324
  2. SODIUM B CARBONATE (SODIUM BICARBONATE) [Concomitant]
  3. PREDNISONE (PREDNISONE) [Concomitant]
  4. COUMADIN /00014802/ (WARFARIN SODIUM) [Concomitant]
  5. ZOCOR (SIMVASTATIN) [Concomitant]
  6. ERGOCALCIFEROL (ERGOCALCIFEROL) [Concomitant]
  7. TYLENOL EXTRA STRENGTH (PARACETAMOL) [Concomitant]

REACTIONS (2)
  - Death [None]
  - Myelodysplastic syndrome [None]
